FAERS Safety Report 8418142-2 (Version None)
Quarter: 2012Q2

REPORT INFORMATION
  Report Type: 
  Country: None (occurrence: None)
  Receive Date: 20120531
  Receipt Date: 20120519
  Transmission Date: 20120825
  Serious: Yes (Hospitalization)
  Sender: FDA-Public Use
  Company Number: 2012AP001532

PATIENT
  Age: 76 Year
  Sex: Female

DRUGS (2)
  1. FLUCONAZOLE [Suspect]
     Indication: CANDIDIASIS
  2. AZITHROMYCIN [Suspect]
     Indication: OROPHARYNGEAL PAIN

REACTIONS (6)
  - DEHYDRATION [None]
  - SYNCOPE [None]
  - CONJUNCTIVITIS [None]
  - ACUTE GENERALISED EXANTHEMATOUS PUSTULOSIS [None]
  - ORTHOSTATIC HYPOTENSION [None]
  - CANDIDIASIS [None]
